FAERS Safety Report 8158209-X (Version None)
Quarter: 2012Q1

REPORT INFORMATION
  Report Type: 
  Country: None (occurrence: None)
  Receive Date: 20120222
  Receipt Date: 20120209
  Transmission Date: 20120608
  Serious: Yes (Life-Threatening, Hospitalization, Congenital Anomaly, Other)
  Sender: FDA-Public Use
  Company Number: DE-MYLANLABS-2012S1003679

PATIENT
  Age: 30 Year
  Sex: Female
  Weight: 64 kg

DRUGS (2)
  1. AZATHIOPRINE [Suspect]
     Indication: COLITIS ULCERATIVE
     Route: 048
     Dates: start: 20100705, end: 20101231
  2. PENTASA [Concomitant]
     Indication: COLITIS ULCERATIVE
     Dosage: 0 -25.4 GESTATIONAL WEEK
     Route: 048
     Dates: start: 20100705, end: 20101231

REACTIONS (4)
  - PREMATURE RUPTURE OF MEMBRANES [None]
  - MATERNAL EXPOSURE DURING PREGNANCY [None]
  - FOETAL DISORDER [None]
  - CERVICAL INCOMPETENCE [None]
